FAERS Safety Report 23192060 (Version 3)
Quarter: 2023Q4

REPORT INFORMATION
  Report Type: Spontaneous
  Country: CN (occurrence: CN)
  Receive Date: 20231116
  Receipt Date: 20231121
  Transmission Date: 20240110
  Serious: Yes (Other)
  Sender: FDA-Public Use
  Company Number: CN-PFIZER INC-PV202300183706

PATIENT
  Age: 64 Year
  Sex: Male
  Weight: 60 kg

DRUGS (9)
  1. MEROPENEM [Interacting]
     Active Substance: MEROPENEM
     Indication: Endocarditis
     Dosage: UNK
  2. MEROPENEM [Interacting]
     Active Substance: MEROPENEM
     Indication: Pneumonia
     Dosage: UNK
  3. VANCOMYCIN [Interacting]
     Active Substance: VANCOMYCIN
     Indication: Endocarditis
     Dosage: UNK
  4. VANCOMYCIN [Interacting]
     Active Substance: VANCOMYCIN
     Indication: Pneumonia
     Dosage: UNK
  5. DAPTOMYCIN [Interacting]
     Active Substance: DAPTOMYCIN
     Indication: Endocarditis
     Dosage: 0.5 G, DAILY
  6. DAPTOMYCIN [Interacting]
     Active Substance: DAPTOMYCIN
     Indication: Pneumonia
  7. LINEZOLID [Concomitant]
     Active Substance: LINEZOLID
     Indication: Staphylococcal infection
     Dosage: UNK
  8. MICAFUNGIN [Concomitant]
     Active Substance: MICAFUNGIN SODIUM
     Indication: Fungal infection
     Dosage: UNK
  9. UNSPECIFIED INGREDIENT [Concomitant]
     Active Substance: UNSPECIFIED INGREDIENT
     Dosage: UNK

REACTIONS (5)
  - Gastrointestinal haemorrhage [Recovering/Resolving]
  - Liver function test abnormal [Recovering/Resolving]
  - Drug ineffective [Unknown]
  - Drug interaction [Unknown]
  - Coagulopathy [Recovering/Resolving]
